FAERS Safety Report 8222983-4 (Version None)
Quarter: 2012Q1

REPORT INFORMATION
  Report Type: 
  Country: None (occurrence: None)
  Receive Date: 20120320
  Receipt Date: 20120315
  Transmission Date: 20120608
  Serious: Yes (Other)
  Sender: FDA-Public Use
  Company Number: PHEH2012US005234

PATIENT
  Sex: Female

DRUGS (12)
  1. LEVOTHYROXINE SODIUM [Concomitant]
     Dosage: 1 DF (112 MCG), DAILY
  2. FUROSEMIDE [Concomitant]
     Dosage: 20 MG, MOST DAYS
  3. MAGNESIUM OXIDE [Concomitant]
     Dosage: 400 MG, DAILY
  4. OXYCODONE HCL AND ACETAMINOPHEN [Concomitant]
     Dosage: 2 DF (5/325 MG), DAILY
  5. VITAMIN D [Concomitant]
     Dosage: 3 DF (1000 MG), DAILY
  6. Q10 [Concomitant]
     Dosage: 1 DF, DAILY
  7. DIOVAN [Suspect]
     Dosage: 2 DF (160 MG), DAILY
  8. PRESERVISION LUTEIN EYE VITA.+MIN.SUP.SOFTG. [Concomitant]
     Dosage: 2 DF, DAILY
  9. METOPROLOL SUCCINATE [Concomitant]
     Dosage: 1 DF(75 MG), DAILY
  10. CALCIUM CARBONATE [Concomitant]
     Dosage: 600 MG, DAILY
  11. LOVAZA [Concomitant]
     Dosage: 2 DF (1200 MG), DAILY
  12. ASPIRIN [Concomitant]
     Dosage: 1 DF,  DAILY

REACTIONS (1)
  - POOR PERIPHERAL CIRCULATION [None]
